FAERS Safety Report 5757770-X (Version None)
Quarter: 2008Q2

REPORT INFORMATION
  Report Type: 
  Country: None (occurrence: None)
  Receive Date: 20080529
  Receipt Date: 20080519
  Transmission Date: 20081010
  Serious: Yes (Life-Threatening, Other)
  Sender: FDA-Public Use
  Company Number: IDA-00061

PATIENT
  Age: 85 Year
  Sex: Female

DRUGS (6)
  1. AVLOCARDYL (PROPRANOLOL) [Suspect]
     Dosage: 40 MG BID PO
     Route: 048
     Dates: end: 20080408
  2. MEMANTINE HCL [Suspect]
     Dates: start: 20080227, end: 20080408
  3. NITRIDERM TTS (GLYCERYL TRINITRATE) [Concomitant]
  4. ANAFRANIL [Concomitant]
  5. COZAAR [Concomitant]
  6. IMOVANE (ZOPICLONE) [Concomitant]

REACTIONS (5)
  - CARDIAC ARREST [None]
  - ELECTROCARDIOGRAM QT PROLONGED [None]
  - GASTROINTESTINAL HAEMORRHAGE [None]
  - HYPOKALAEMIA [None]
  - TORSADE DE POINTES [None]
